FAERS Safety Report 4648689-6 (Version None)
Quarter: 2005Q2

REPORT INFORMATION
  Report Type: 
  Country: None (occurrence: None)
  Receive Date: 20050429
  Receipt Date: 20050405
  Transmission Date: 20051028
  Serious: Yes (Other)
  Sender: FDA-Public Use
  Company Number: PHEH2005US03964

PATIENT
  Age: 82 Year
  Sex: Male

DRUGS (2)
  1. ENABLEX [Suspect]
     Indication: URINARY INCONTINENCE
     Dosage: 7.5 MG, QD
     Route: 048
     Dates: start: 20050401
  2. METHOTREXATE [Concomitant]

REACTIONS (2)
  - BALANCE DISORDER [None]
  - BRAIN OPERATION [None]
